FAERS Safety Report 4787023-8 (Version None)
Quarter: 2005Q4

REPORT INFORMATION
  Report Type: 
  Country: None (occurrence: None)
  Receive Date: 20051004
  Receipt Date: 20050922
  Transmission Date: 20060501
  Serious: Yes (Other)
  Sender: FDA-Public Use
  Company Number: US-JNJFOC-20050804735

PATIENT
  Sex: Female

DRUGS (17)
  1. REMICADE [Suspect]
     Dosage: 410 MG
     Route: 042
  2. REMICADE [Suspect]
     Indication: CROHN'S DISEASE
     Route: 042
  3. BENADRYL [Concomitant]
     Indication: PREMEDICATION
  4. SOLU-MEDROL [Concomitant]
     Indication: PREMEDICATION
  5. SYNTHROID [Concomitant]
  6. PREDNISONE [Concomitant]
  7. AMARYL [Concomitant]
  8. AMILORIDE HCL [Concomitant]
  9. POTASSIUM [Concomitant]
  10. ZOLOFT [Concomitant]
  11. LASIX [Concomitant]
  12. PRILOSEC [Concomitant]
  13. ZAROXOLYN [Concomitant]
  14. COUMADIN [Concomitant]
  15. INSULIN [Concomitant]
  16. FOSAMAX [Concomitant]
  17. ACTOS [Concomitant]

REACTIONS (5)
  - CHEST DISCOMFORT [None]
  - DYSPNOEA [None]
  - FLUSHING [None]
  - INFUSION RELATED REACTION [None]
  - LIVER ABSCESS [None]
